FAERS Safety Report 25405124 (Version 3)
Quarter: 2025Q2

REPORT INFORMATION
  Report Type: Report from Study
  Country: KR (occurrence: KR)
  Receive Date: 20250606
  Receipt Date: 20250617
  Transmission Date: 20250716
  Serious: Yes (Hospitalization)
  Sender: ABBVIE
  Company Number: KR-ABBVIE-6308395

PATIENT
  Age: 52 Year
  Sex: Male
  Weight: 85 kg

DRUGS (14)
  1. SKYRIZI [Suspect]
     Active Substance: RISANKIZUMAB-RZAA
     Indication: Psoriasis
     Route: 058
     Dates: start: 20240118, end: 20240118
  2. SKYRIZI [Suspect]
     Active Substance: RISANKIZUMAB-RZAA
     Route: 058
     Dates: start: 20240412, end: 20240412
  3. SKYRIZI [Suspect]
     Active Substance: RISANKIZUMAB-RZAA
     Route: 058
     Dates: start: 20231026, end: 20231026
  4. SKYRIZI [Suspect]
     Active Substance: RISANKIZUMAB-RZAA
     Route: 058
     Dates: start: 20230413, end: 20230413
  5. SKYRIZI [Suspect]
     Active Substance: RISANKIZUMAB-RZAA
     Route: 058
     Dates: start: 20230803, end: 20230803
  6. SKYRIZI [Suspect]
     Active Substance: RISANKIZUMAB-RZAA
     Route: 058
     Dates: start: 20230511, end: 20230511
  7. FENOFIBRATE [Concomitant]
     Active Substance: FENOFIBRATE
     Indication: Prophylaxis
     Dosage: 160MG
     Route: 048
     Dates: start: 20231115
  8. DIABEX [Concomitant]
     Active Substance: METFORMIN HYDROCHLORIDE
     Indication: Diabetes mellitus
     Dosage: 500MG
     Route: 048
     Dates: start: 20231115
  9. Dilatrend sr [Concomitant]
     Indication: Hypertension
     Dosage: 8MG
     Route: 048
     Dates: start: 20231115
  10. Monterizine [Concomitant]
     Indication: Asthma
     Route: 048
     Dates: start: 20231115
  11. Duowell [Concomitant]
     Indication: Hypertension
     Dosage: 80/10MG
     Route: 048
     Dates: start: 20231115
  12. SYMBICORT [Concomitant]
     Active Substance: BUDESONIDE\FORMOTEROL FUMARATE DIHYDRATE
     Indication: Asthma
     Dosage: UNIT DOSE : ONCE, 160/4.5 G (120DOSE).
     Route: 055
     Dates: start: 20231115
  13. GLICLAZIDE [Concomitant]
     Active Substance: GLICLAZIDE
     Indication: Diabetes mellitus
     Dosage: 30 MILLIGRAM
     Route: 048
     Dates: start: 20231115
  14. METHYLPREDNISOLONE ACEPONATE [Concomitant]
     Active Substance: METHYLPREDNISOLONE ACEPONATE
     Indication: Psoriasis
     Dosage: 15G. OINTMENT VIA TOPICAL
     Dates: start: 20240118

REACTIONS (2)
  - Lung abscess [Recovered/Resolved]
  - Pneumonia [Recovered/Resolved]

NARRATIVE: CASE EVENT DATE: 20240302
